FAERS Safety Report 24368016 (Version 4)
Quarter: 2024Q4

REPORT INFORMATION
  Report Type: Report from Study
  Country: US (occurrence: US)
  Receive Date: 20240926
  Receipt Date: 20241209
  Transmission Date: 20250114
  Serious: Yes (Other)
  Sender: NOVARTIS
  Company Number: US-002147023-NVSC2024US092427

PATIENT
  Age: 50 Year
  Sex: Female
  Weight: 87.7 kg

DRUGS (51)
  1. TAFINLAR [Suspect]
     Active Substance: DABRAFENIB MESYLATE
     Indication: Metastatic malignant melanoma
     Dosage: UNK
     Route: 065
     Dates: start: 20140214
  2. TAFINLAR [Suspect]
     Active Substance: DABRAFENIB MESYLATE
     Dosage: 150 UNK
     Route: 048
     Dates: start: 20180604, end: 20180807
  3. TAFINLAR [Suspect]
     Active Substance: DABRAFENIB MESYLATE
     Dosage: 150 UNK
     Route: 048
     Dates: start: 20180806, end: 20180924
  4. TAFINLAR [Suspect]
     Active Substance: DABRAFENIB MESYLATE
     Dosage: 150 UNK
     Route: 048
     Dates: start: 20180924, end: 20181119
  5. TAFINLAR [Suspect]
     Active Substance: DABRAFENIB MESYLATE
     Dosage: 150 UNK
     Route: 048
     Dates: start: 20181119, end: 20190114
  6. TAFINLAR [Suspect]
     Active Substance: DABRAFENIB MESYLATE
     Dosage: 150 UNK
     Route: 048
     Dates: start: 20190114, end: 20190311
  7. TAFINLAR [Suspect]
     Active Substance: DABRAFENIB MESYLATE
     Dosage: 150 UNK
     Route: 048
     Dates: start: 20190311, end: 20190506
  8. TAFINLAR [Suspect]
     Active Substance: DABRAFENIB MESYLATE
     Dosage: 150 UNK
     Route: 048
     Dates: start: 20190515, end: 20190701
  9. TAFINLAR [Suspect]
     Active Substance: DABRAFENIB MESYLATE
     Dosage: 150 UNK
     Route: 048
     Dates: start: 20190701, end: 20190828
  10. TAFINLAR [Suspect]
     Active Substance: DABRAFENIB MESYLATE
     Dosage: 150 UNK
     Route: 048
     Dates: start: 20190828, end: 20191021
  11. TAFINLAR [Suspect]
     Active Substance: DABRAFENIB MESYLATE
     Dosage: 150 UNK
     Route: 048
     Dates: start: 20200601, end: 20200727
  12. TAFINLAR [Suspect]
     Active Substance: DABRAFENIB MESYLATE
     Dosage: 150 UNK
     Route: 048
     Dates: start: 20200727, end: 20200921
  13. TAFINLAR [Suspect]
     Active Substance: DABRAFENIB MESYLATE
     Dosage: 150 UNK
     Route: 048
     Dates: start: 20200921, end: 20201116
  14. TAFINLAR [Suspect]
     Active Substance: DABRAFENIB MESYLATE
     Dosage: 150 UNK
     Route: 048
     Dates: start: 20201116, end: 20210111
  15. TAFINLAR [Suspect]
     Active Substance: DABRAFENIB MESYLATE
     Dosage: 150 UNK
     Route: 048
     Dates: start: 20210111, end: 20210317
  16. TAFINLAR [Suspect]
     Active Substance: DABRAFENIB MESYLATE
     Dosage: 150 UNK
     Route: 048
     Dates: start: 20210317, end: 20210503
  17. TAFINLAR [Suspect]
     Active Substance: DABRAFENIB MESYLATE
     Dosage: 150 UNK
     Route: 048
     Dates: start: 20210503, end: 20210628
  18. TAFINLAR [Suspect]
     Active Substance: DABRAFENIB MESYLATE
     Dosage: 150 UNK
     Route: 048
     Dates: start: 20210628, end: 20210823
  19. TAFINLAR [Suspect]
     Active Substance: DABRAFENIB MESYLATE
     Dosage: 150 UNK
     Route: 048
     Dates: start: 20210823, end: 20211027
  20. TAFINLAR [Suspect]
     Active Substance: DABRAFENIB MESYLATE
     Dosage: 150 UNK
     Route: 048
     Dates: start: 20211027, end: 20211213
  21. TAFINLAR [Suspect]
     Active Substance: DABRAFENIB MESYLATE
     Dosage: 150 UNK
     Route: 048
     Dates: start: 20211213, end: 20220302
  22. TAFINLAR [Suspect]
     Active Substance: DABRAFENIB MESYLATE
     Dosage: 150 UNK
     Route: 048
     Dates: start: 20220302, end: 20220425
  23. TAFINLAR [Suspect]
     Active Substance: DABRAFENIB MESYLATE
     Dosage: 150 UNK
     Route: 048
     Dates: start: 20220425, end: 20220620
  24. TAFINLAR [Suspect]
     Active Substance: DABRAFENIB MESYLATE
     Dosage: 150 UNK
     Route: 048
     Dates: start: 20220620, end: 20220815
  25. TAFINLAR [Suspect]
     Active Substance: DABRAFENIB MESYLATE
     Dosage: 150 UNK
     Route: 048
     Dates: start: 20220815, end: 20221017
  26. TAFINLAR [Suspect]
     Active Substance: DABRAFENIB MESYLATE
     Dosage: 150 UNK
     Route: 048
     Dates: start: 20221017, end: 20221205
  27. TAFINLAR [Suspect]
     Active Substance: DABRAFENIB MESYLATE
     Dosage: 150 UNK
     Route: 048
     Dates: start: 20221205, end: 20230130
  28. TAFINLAR [Suspect]
     Active Substance: DABRAFENIB MESYLATE
     Dosage: 150 UNK
     Route: 048
     Dates: start: 20230130, end: 20230320
  29. TAFINLAR [Suspect]
     Active Substance: DABRAFENIB MESYLATE
     Dosage: 150 UNK
     Route: 048
     Dates: start: 20230320, end: 20230522
  30. TAFINLAR [Suspect]
     Active Substance: DABRAFENIB MESYLATE
     Dosage: 150 UNK
     Route: 048
     Dates: start: 20230522, end: 20230717
  31. TAFINLAR [Suspect]
     Active Substance: DABRAFENIB MESYLATE
     Dosage: 150 UNK
     Route: 048
     Dates: start: 20230717, end: 20230911
  32. TAFINLAR [Suspect]
     Active Substance: DABRAFENIB MESYLATE
     Dosage: 150 UNK
     Route: 048
     Dates: start: 20230911, end: 20231106
  33. TAFINLAR [Suspect]
     Active Substance: DABRAFENIB MESYLATE
     Dosage: 150 UNK
     Route: 048
     Dates: start: 20231106, end: 20240103
  34. TAFINLAR [Suspect]
     Active Substance: DABRAFENIB MESYLATE
     Dosage: 150 UNK
     Route: 048
     Dates: start: 20231106, end: 20240102
  35. TAFINLAR [Suspect]
     Active Substance: DABRAFENIB MESYLATE
     Dosage: 150 UNK
     Route: 048
     Dates: start: 20240107, end: 20240226
  36. TAFINLAR [Suspect]
     Active Substance: DABRAFENIB MESYLATE
     Dosage: 150 UNK
     Route: 048
     Dates: start: 20240226, end: 20240424
  37. TAFINLAR [Suspect]
     Active Substance: DABRAFENIB MESYLATE
     Dosage: 150 UNK
     Route: 048
     Dates: start: 20240424, end: 20240610
  38. TAFINLAR [Suspect]
     Active Substance: DABRAFENIB MESYLATE
     Dosage: 150 UNK
     Route: 048
     Dates: start: 20240610, end: 20240812
  39. TAFINLAR [Suspect]
     Active Substance: DABRAFENIB MESYLATE
     Dosage: 300 MG, QD (150 MG BID)
     Route: 048
  40. TAFINLAR [Suspect]
     Active Substance: DABRAFENIB MESYLATE
     Dosage: 150 UNK
     Route: 048
     Dates: start: 20240812, end: 20241007
  41. TAFINLAR [Suspect]
     Active Substance: DABRAFENIB MESYLATE
     Dosage: 150 UNK
     Route: 048
     Dates: start: 20241007, end: 20241202
  42. NORCO [Concomitant]
     Active Substance: ACETAMINOPHEN\HYDROCODONE BITARTRATE
     Indication: Product used for unknown indication
     Dosage: 7.5-325 MG, ONCE/SINGLE
     Route: 048
     Dates: start: 20210805, end: 20210805
  43. ZOFRAN [Concomitant]
     Active Substance: ONDANSETRON HYDROCHLORIDE
     Indication: Product used for unknown indication
     Dosage: 4 MG, ONCE/SINGLE
     Route: 048
     Dates: start: 20210805, end: 20210812
  44. TYLENOL [Concomitant]
     Active Substance: ACETAMINOPHEN
     Indication: Product used for unknown indication
     Dosage: 650 MG, PRN
     Route: 048
     Dates: start: 20230401, end: 20230403
  45. CEFTIN [Concomitant]
     Active Substance: CEFUROXIME AXETIL
     Indication: Product used for unknown indication
     Dosage: 250 MG, BID
     Route: 048
     Dates: start: 20231222, end: 20231229
  46. BACTRIM DS [Concomitant]
     Active Substance: SULFAMETHOXAZOLE\TRIMETHOPRIM
     Indication: Product used for unknown indication
     Dosage: 800-160 MG, BID
     Route: 048
     Dates: start: 20240103, end: 20240110
  47. OMNICEF [Concomitant]
     Active Substance: CEFDINIR
     Indication: Product used for unknown indication
     Dosage: 300 MG, BID
     Route: 048
     Dates: start: 20240224, end: 20240302
  48. PRILOSEC [Concomitant]
     Active Substance: OMEPRAZOLE MAGNESIUM
     Indication: Product used for unknown indication
     Dosage: 40 MG, QD
     Route: 048
     Dates: start: 20240710
  49. CARAFATE [Concomitant]
     Active Substance: SUCRALFATE
     Indication: Product used for unknown indication
     Dosage: 1 G, QID
     Route: 048
     Dates: start: 20240710, end: 20240711
  50. MAALOX MAX [Concomitant]
     Active Substance: ALUMINUM HYDROXIDE\DIMETHICONE\MAGNESIUM HYDROXIDE
     Indication: Product used for unknown indication
     Dosage: 30 ML, ONCE/SINGLE
     Route: 048
     Dates: start: 20240710, end: 20240710
  51. XYLOCAINE [Concomitant]
     Active Substance: LIDOCAINE HYDROCHLORIDE
     Indication: Product used for unknown indication
     Dosage: 15 ML, ONCE/SINGLE
     Route: 048
     Dates: start: 20240710, end: 20240710

REACTIONS (63)
  - Nephrolithiasis [Recovered/Resolved]
  - Sarcoidosis [Not Recovered/Not Resolved]
  - Nephrolithiasis [Recovered/Resolved]
  - Pulmonary congestion [Recovered/Resolved]
  - Haemangioma of skin [Not Recovered/Not Resolved]
  - Upper respiratory tract infection [Recovered/Resolved]
  - Skin papilloma [Recovered/Resolved]
  - Arthralgia [Recovered/Resolved]
  - Seborrhoeic keratosis [Not Recovered/Not Resolved]
  - Skin lesion [Not Recovered/Not Resolved]
  - Cough [Recovered/Resolved]
  - Cough [Recovered/Resolved]
  - Cough [Recovered/Resolved]
  - Rhinorrhoea [Recovered/Resolved]
  - Abdominal pain lower [Recovered/Resolved]
  - Abdominal pain [Recovered/Resolved]
  - Abdominal pain [Recovered/Resolved]
  - Abdominal pain [Recovered/Resolved]
  - Hyperkeratosis [Not Recovered/Not Resolved]
  - Skin lesion [Recovered/Resolved]
  - Productive cough [Recovered/Resolved]
  - Myalgia [Recovered/Resolved]
  - Musculoskeletal discomfort [Recovered/Resolved]
  - Asthenia [Recovered/Resolved]
  - COVID-19 [Recovered/Resolved]
  - Fatigue [Recovered/Resolved]
  - Productive cough [Recovered/Resolved]
  - Myalgia [Recovered/Resolved]
  - Headache [Recovered/Resolved]
  - Anosmia [Recovered/Resolved]
  - Ageusia [Recovered/Resolved]
  - Rhinorrhoea [Recovered/Resolved]
  - Ear pain [Recovered/Resolved]
  - Vomiting [Recovered/Resolved]
  - Nausea [Recovered/Resolved]
  - Mammogram abnormal [Recovered/Resolved]
  - Arthralgia [Recovered/Resolved]
  - Urinary tract infection [Recovered/Resolved]
  - Rash maculo-papular [Recovered/Resolved]
  - Rash macular [Recovered/Resolved]
  - Contusion [Recovered/Resolved]
  - Pain of skin [Recovered/Resolved]
  - Pallor [Recovered/Resolved]
  - Ecchymosis [Recovered/Resolved]
  - Palpitations [Recovered/Resolved]
  - Rash maculo-papular [Recovered/Resolved]
  - Erythema nodosum [Recovered/Resolved]
  - Oedema peripheral [Recovered/Resolved]
  - Breast pain [Recovered/Resolved]
  - Breast tenderness [Recovered/Resolved]
  - Nipple pain [Recovered/Resolved]
  - Urinary tract infection [Recovered/Resolved]
  - Eye disorder [Recovered/Resolved]
  - Ocular hyperaemia [Recovered/Resolved]
  - Gastrooesophageal reflux disease [Not Recovered/Not Resolved]
  - Abdominal pain upper [Recovered/Resolved]
  - Lymphopenia [Recovered/Resolved]
  - Dysphonia [Recovered/Resolved]
  - Pyrexia [Recovered/Resolved]
  - Oropharyngeal pain [Recovered/Resolved]
  - Lymphopenia [Recovered/Resolved]
  - Lymphocyte count decreased [Recovered/Resolved]
  - Large intestine polyp [Recovered/Resolved]

NARRATIVE: CASE EVENT DATE: 20180604
